FAERS Safety Report 7156665-7 (Version None)
Quarter: 2010Q4

REPORT INFORMATION
  Report Type: 
  Country: None (occurrence: None)
  Receive Date: 20101214
  Receipt Date: 20100126
  Transmission Date: 20110411
  Serious: No
  Sender: FDA-Public Use
  Company Number: US-ASTRAZENECA-2009SE28219

PATIENT
  Age: 76 Year
  Sex: Female

DRUGS (12)
  1. CRESTOR [Suspect]
     Route: 048
     Dates: start: 20091101, end: 20091216
  2. ARIMIDEX [Suspect]
     Indication: BREAST CANCER
     Route: 048
  3. LEVOTHYROXINE [Concomitant]
     Indication: HYPOTHYROIDISM
  4. AVELINDE [Concomitant]
     Indication: BLOOD PRESSURE
  5. AMLODIPINE [Concomitant]
     Indication: BLOOD PRESSURE
  6. PROPOXYPHENE HYDROCHLORIDE [Concomitant]
     Indication: ARTHRALGIA
  7. METOCLOPRAMIDE [Concomitant]
     Indication: GASTROINTESTINAL MOTILITY DISORDER
  8. ASPIRIN [Concomitant]
  9. IBUPROFEN [Concomitant]
  10. CO-Q 10 [Concomitant]
  11. GARLIC SUPPLEMENT [Concomitant]
  12. FISH OIL SUPPLEMENT [Concomitant]

REACTIONS (7)
  - CHROMATURIA [None]
  - HEADACHE [None]
  - MYALGIA [None]
  - OEDEMA [None]
  - URINE ODOUR ABNORMAL [None]
  - URINE OUTPUT DECREASED [None]
  - WEIGHT INCREASED [None]
